FAERS Safety Report 9133725 (Version 3)
Quarter: 2013Q4

REPORT INFORMATION
  Report Type: Spontaneous
  Country: US (occurrence: US)
  Receive Date: 20130302
  Receipt Date: 20131015
  Transmission Date: 20140711
  Serious: No
  Sender: FDA-Public Use
  Company Number: US-ASTRAZENECA-2013SE10523

PATIENT
  Age: 68 Year
  Sex: Male
  Weight: 72.6 kg

DRUGS (23)
  1. SYMBICORT [Suspect]
     Indication: ASTHMA
     Dosage: 160/4.5 MCG, TWO PUFF, BID
     Route: 055
     Dates: start: 2010
  2. SYMBICORT [Suspect]
     Indication: ASTHMA
     Dosage: 160/4.5 MCG, ONE PUFF, BID
     Route: 055
  3. LISINOPRIL [Suspect]
     Indication: HYPERTENSION
     Route: 048
     Dates: start: 20121025
  4. ASPIRIN [Concomitant]
     Indication: CARDIAC DISORDER
     Route: 048
  5. DOXYCYCLINE [Concomitant]
     Indication: SKIN DISORDER
     Route: 048
  6. DOXYCYCLINE [Concomitant]
     Indication: SKIN DISORDER
     Route: 048
  7. CARTIA XT [Concomitant]
     Indication: CARDIAC DISORDER
     Route: 048
     Dates: start: 20120813
  8. CARTIA XT [Concomitant]
     Indication: BLOOD PRESSURE ABNORMAL
     Route: 048
     Dates: start: 20120813
  9. ALLEGRA [Concomitant]
     Indication: MULTIPLE ALLERGIES
     Route: 048
  10. DOXEPIN [Concomitant]
     Indication: NERVOUS SYSTEM DISORDER
     Route: 048
     Dates: start: 20120620
  11. LIPITOR [Concomitant]
     Indication: BLOOD CHOLESTEROL ABNORMAL
     Route: 048
  12. LIPITOR [Concomitant]
     Indication: BLOOD CHOLESTEROL ABNORMAL
     Route: 048
     Dates: start: 20120510
  13. FLO-NASE [Concomitant]
     Indication: MULTIPLE ALLERGIES
     Dosage: 220 MCG , TWO SPAY, DAILY
     Route: 048
  14. FISH OIL [Concomitant]
     Indication: SUPPLEMENTATION THERAPY
     Route: 048
  15. ALBUTEROL SULFATE [Concomitant]
     Dosage: 90 MCG, TWO PUFFS EVERY 4-6 HOURS AS REQUIRED
     Route: 055
  16. COLACE [Concomitant]
     Route: 048
  17. CALCIUM + D [Concomitant]
     Indication: SUPPLEMENTATION THERAPY
     Route: 048
  18. FEXOFENADINE [Concomitant]
     Indication: MULTIPLE ALLERGIES
     Route: 048
  19. FLUCONAZOLE [Concomitant]
     Indication: MULTIPLE ALLERGIES
     Dosage: 50 MCG PER SPRAY DAILY
     Route: 048
  20. GENERIC CENTRUM SILVER [Concomitant]
     Indication: SUPPLEMENTATION THERAPY
     Route: 048
  21. LUTEIN [Concomitant]
     Indication: EYE DISORDER
     Route: 048
  22. FLAXSEED OIL [Concomitant]
     Indication: EYE DISORDER
     Route: 048
  23. GARLIC OIL [Concomitant]
     Indication: SUPPLEMENTATION THERAPY
     Route: 048

REACTIONS (17)
  - Feeling abnormal [Unknown]
  - Nocturia [Unknown]
  - Cerumen impaction [Unknown]
  - Rhinitis allergic [Unknown]
  - Benign prostatic hyperplasia [Unknown]
  - Asthma [Unknown]
  - Increased bronchial secretion [Unknown]
  - Asthenia [Not Recovered/Not Resolved]
  - Malaise [Recovering/Resolving]
  - Hypertension [Unknown]
  - Blood pressure abnormal [Unknown]
  - Throat irritation [Not Recovered/Not Resolved]
  - Cough [Unknown]
  - Intentional drug misuse [Unknown]
  - Wrong technique in drug usage process [Unknown]
  - Off label use [Unknown]
  - Device misuse [Unknown]
